FAERS Safety Report 9630364 (Version 3)
Quarter: 2014Q1

REPORT INFORMATION
  Report Type: Spontaneous
  Country: US (occurrence: US)
  Receive Date: 20131018
  Receipt Date: 20140318
  Transmission Date: 20141002
  Serious: Yes (Death)
  Sender: FDA-Public Use
  Company Number: US-BIOGENIDEC-2013BI098568

PATIENT
  Age: 42 Year
  Sex: Female
  Weight: 78 kg

DRUGS (14)
  1. TYSABRI [Suspect]
     Indication: MULTIPLE SCLEROSIS
     Route: 042
     Dates: start: 20120111, end: 20130903
  2. AZO STANDARD [Concomitant]
  3. CEFTIN [Concomitant]
     Route: 048
  4. CELEXA [Concomitant]
  5. DEMEROL [Concomitant]
     Route: 048
  6. FLOMAX [Concomitant]
  7. FOCALIN [Concomitant]
     Route: 048
  8. KLONOPIN [Concomitant]
     Route: 048
  9. LACTULOSE [Concomitant]
     Route: 048
  10. METHENAMINE [Concomitant]
     Route: 048
  11. PHENERGAN [Concomitant]
  12. RELPAX [Concomitant]
  13. TOPAMAX [Concomitant]
  14. ZOLPIDEM [Concomitant]

REACTIONS (1)
  - Cardiac arrest [Fatal]
